FAERS Safety Report 9115662 (Version 1)
Quarter: 2013Q1

REPORT INFORMATION
  Report Type: Spontaneous
  Country: US (occurrence: US)
  Receive Date: 20130225
  Receipt Date: 20130225
  Transmission Date: 20140127
  Serious: No
  Sender: FDA-Public Use
  Company Number: US-BRISTOL-MYERS SQUIBB COMPANY-17085911

PATIENT
  Age: 31 Year
  Sex: Male
  Weight: 83.9 kg

DRUGS (2)
  1. KENALOG [Suspect]
     Indication: BACK INJURY
     Dosage: 1 INJ.
     Dates: start: 20111201
  2. MULTIVITAMINS [Concomitant]

REACTIONS (3)
  - Injection site atrophy [Unknown]
  - Skin hyperpigmentation [Unknown]
  - Skin hypopigmentation [Unknown]
